FAERS Safety Report 24340958 (Version 1)
Quarter: 2024Q3

REPORT INFORMATION
  Report Type: Report from Study
  Country: MX (occurrence: MX)
  Receive Date: 20240919
  Receipt Date: 20240919
  Transmission Date: 20241017
  Serious: Yes (Life-Threatening, Hospitalization)
  Sender: SANDOZ
  Company Number: MX-JAZZ PHARMACEUTICALS-2023-MX-016639

PATIENT
  Age: 75 Year
  Sex: Male
  Weight: 54.3 kg

DRUGS (5)
  1. OXALIPLATIN [Suspect]
     Active Substance: OXALIPLATIN
     Indication: Oesophageal adenocarcinoma
     Dosage: 195 MG/M2, (DAY 1 OF 21 DAY CYCLE)
     Route: 042
     Dates: start: 20230803
  2. TRASTUZUMAB [Suspect]
     Active Substance: TRASTUZUMAB
     Indication: Oesophageal adenocarcinoma
     Dosage: 8 MG/KG, Q3W(SOLUTION FOR INFUSION)
     Route: 042
     Dates: start: 20230803
  3. CAPECITABINE [Concomitant]
     Active Substance: CAPECITABINE
     Indication: Oesophageal adenocarcinoma
     Dosage: 3000 MG/M2, DAY 1-15 OF 21 DAYS CYCLE
     Route: 048
     Dates: start: 20230803
  4. DEXAMETHASONE [Concomitant]
     Active Substance: DEXAMETHASONE
     Indication: Product used for unknown indication
     Dosage: UNK
     Route: 065
     Dates: start: 20230803
  5. DIPHENHYDRAMINE [Concomitant]
     Active Substance: DIPHENHYDRAMINE
     Indication: Product used for unknown indication
     Dosage: UNK
     Route: 065
     Dates: start: 20230803

REACTIONS (1)
  - Acute myocardial infarction [Recovering/Resolving]

NARRATIVE: CASE EVENT DATE: 20230803
